FAERS Safety Report 15592834 (Version 1)
Quarter: 2018Q4

REPORT INFORMATION
  Report Type: Spontaneous
  Country: US (occurrence: US)
  Receive Date: 20181102
  Receipt Date: 20181102
  Transmission Date: 20190205
  Serious: Yes (Hospitalization)
  Sender: FDA-Public Use
  Company Number: None

PATIENT
  Age: 39 Year
  Sex: Male
  Weight: 76.52 kg

DRUGS (1)
  1. SULFAMETHIZOLE/TRIMETHOPRIM [Suspect]
     Active Substance: SULFAMETHOXAZOLE\TRIMETHOPRIM
     Indication: NECROTISING FASCIITIS
     Route: 048
     Dates: start: 20180903, end: 20180921

REACTIONS (3)
  - Fall [None]
  - Dehydration [None]
  - Hyperkalaemia [None]

NARRATIVE: CASE EVENT DATE: 20180921
